FAERS Safety Report 25899073 (Version 1)
Quarter: 2025Q4

REPORT INFORMATION
  Report Type: Spontaneous
  Country: JP (occurrence: JP)
  Receive Date: 20251009
  Receipt Date: 20251009
  Transmission Date: 20260118
  Serious: Yes (Death, Other)
  Sender: JOHNSON AND JOHNSON
  Company Number: JP-JNJFOC-20251008765

PATIENT
  Age: 10 Year
  Sex: Male

DRUGS (2)
  1. OPSUMIT [Suspect]
     Active Substance: MACITENTAN
     Indication: Product used for unknown indication
     Route: 048
  2. OXYGEN [Suspect]
     Active Substance: OXYGEN

REACTIONS (5)
  - Ewing^s sarcoma [Fatal]
  - Pulmonary congestion [Unknown]
  - Pulmonary arterial hypertension [Not Recovered/Not Resolved]
  - Pleural effusion [Unknown]
  - Off label use [Unknown]
